FAERS Safety Report 18344093 (Version 1)
Quarter: 2020Q4

REPORT INFORMATION
  Report Type: Spontaneous
  Country: US (occurrence: US)
  Receive Date: 20201005
  Receipt Date: 20201005
  Transmission Date: 20210114
  Serious: No
  Sender: FDA-Public Use
  Company Number: US-TEVA-2020-US-1834562

PATIENT
  Sex: Male

DRUGS (2)
  1. WARFARIN SODIUM. [Suspect]
     Active Substance: WARFARIN SODIUM
     Indication: PROPHYLAXIS
     Route: 065
  2. WARFARIN SODIUM. [Suspect]
     Active Substance: WARFARIN SODIUM
     Dosage: HE WAS TAKING 3 MG OR 3.5 MG
     Route: 065

REACTIONS (4)
  - Laboratory test abnormal [Unknown]
  - Muscle spasms [Unknown]
  - Sensation of blood flow [Unknown]
  - Haematoma [Unknown]

NARRATIVE: CASE EVENT DATE: 2020
